FAERS Safety Report 7637178-2 (Version None)
Quarter: 2011Q3

REPORT INFORMATION
  Report Type: 
  Country: None (occurrence: None)
  Receive Date: 20110726
  Receipt Date: 20110712
  Transmission Date: 20111222
  Serious: Yes (Hospitalization)
  Sender: FDA-Public Use
  Company Number: PHHY2011KR62182

PATIENT

DRUGS (4)
  1. VALPROATE SODIUM [Concomitant]
  2. PHENYTOIN [Concomitant]
  3. LEVOFLOXACIN [Concomitant]
  4. TEGRETOL [Suspect]

REACTIONS (8)
  - ENCEPHALITIS [None]
  - RASH PUSTULAR [None]
  - ERYTHEMA [None]
  - RASH GENERALISED [None]
  - BLISTER [None]
  - SKIN LESION [None]
  - PYREXIA [None]
  - HEADACHE [None]
